FAERS Safety Report 17396400 (Version 3)
Quarter: 2020Q2

REPORT INFORMATION
  Report Type: Spontaneous
  Country: JP (occurrence: JP)
  Receive Date: 20200210
  Receipt Date: 20200522
  Transmission Date: 20200713
  Serious: Yes (Death, Hospitalization, Other)
  Sender: FDA-Public Use
  Company Number: JP-PFIZER INC-2020046409

PATIENT
  Age: 41 Year
  Sex: Female
  Weight: 53.1 kg

DRUGS (17)
  1. RANMARK [Concomitant]
     Active Substance: DENOSUMAB
     Dosage: UNK
     Route: 065
     Dates: end: 20190722
  2. SALINE [SODIUM CHLORIDE] [Concomitant]
     Active Substance: SODIUM CHLORIDE
     Dosage: 2 ML, SINGLE
     Route: 028
     Dates: start: 20190802, end: 20190802
  3. GABAPEN [Concomitant]
     Active Substance: GABAPENTIN
     Dosage: UNK
     Route: 065
     Dates: start: 20190726, end: 20190813
  4. VERZENIO [Concomitant]
     Active Substance: ABEMACICLIB
     Dosage: UNK
     Route: 065
     Dates: start: 20190729, end: 20190807
  5. OXYCODON [Concomitant]
     Active Substance: OXYCODONE
     Dosage: AS NEEDED
     Route: 065
     Dates: start: 20190726
  6. METOCLOPRAMIDE HYDROCHLORIDE. [Concomitant]
     Active Substance: METOCLOPRAMIDE HYDROCHLORIDE
     Dosage: UNK
     Route: 065
     Dates: start: 20190804, end: 20190804
  7. METHOTREXATE 5MG [Suspect]
     Active Substance: METHOTREXATE SODIUM
     Indication: METASTASES TO MENINGES
     Dosage: 12 MG, SINGLE
     Route: 028
     Dates: start: 20190730, end: 20190730
  8. PREDONINE [Concomitant]
     Active Substance: PREDNISOLONE
     Indication: METASTASES TO MENINGES
     Dosage: 5 MG, SINGLE
     Route: 028
     Dates: start: 20190730, end: 20190730
  9. TAPENTA [Concomitant]
     Active Substance: TAPENTADOL HYDROCHLORIDE
     Dosage: UNK
     Route: 065
     Dates: start: 20190726, end: 20190803
  10. METHOTREXATE 5MG [Suspect]
     Active Substance: METHOTREXATE SODIUM
     Dosage: 12 MG, SINGLE
     Route: 028
     Dates: start: 20190802, end: 20190802
  11. PREDONINE [Concomitant]
     Active Substance: PREDNISOLONE
     Dosage: 5 MG, SINGLE
     Route: 028
     Dates: start: 20190802, end: 20190802
  12. DENOTAS [Concomitant]
     Active Substance: CALCIUM CARBONATE\CHOLECALCIFEROL\MAGNESIUM CARBONATE
     Dosage: UNK
     Route: 065
     Dates: end: 20190814
  13. MAGMITT [Concomitant]
     Active Substance: MAGNESIUM OXIDE
     Dosage: UNK
     Route: 065
     Dates: end: 20190802
  14. LEUCOVORIN [CALCIUM FOLINATE] [Concomitant]
     Active Substance: LEUCOVORIN
     Dosage: UNK
     Route: 065
     Dates: start: 20190730, end: 20190807
  15. TRAMAL [Concomitant]
     Active Substance: TRAMADOL
     Dosage: UNK, AS NEEDED
     Route: 065
     Dates: start: 20190722
  16. SALINE [SODIUM CHLORIDE] [Concomitant]
     Active Substance: SODIUM CHLORIDE
     Indication: METASTASES TO MENINGES
     Dosage: 2 ML, SINGLE
     Route: 028
     Dates: start: 20190730, end: 20190730
  17. NOVAMIN [PROCHLORPERAZINE MESILATE] [Concomitant]
     Dosage: UNK
     Route: 065
     Dates: start: 20190804, end: 20190805

REACTIONS (9)
  - Myoclonus [Recovering/Resolving]
  - Seizure [Unknown]
  - Dyslalia [Unknown]
  - Pyrexia [Unknown]
  - Metastases to meninges [Fatal]
  - Disease progression [Fatal]
  - Tonic convulsion [Unknown]
  - Encephalopathy [Recovering/Resolving]
  - Eye movement disorder [Unknown]

NARRATIVE: CASE EVENT DATE: 20190804
